FAERS Safety Report 23018038 (Version 1)
Quarter: 2023Q4

REPORT INFORMATION
  Report Type: Spontaneous
  Country: ES (occurrence: ES)
  Receive Date: 20231003
  Receipt Date: 20231003
  Transmission Date: 20240110
  Serious: Yes (Life-Threatening)
  Sender: FDA-Public Use
  Company Number: None

PATIENT
  Age: 49 Year
  Sex: Female

DRUGS (1)
  1. PHESGO [Suspect]
     Active Substance: HYALURONIDASE-ZZXF\PERTUZUMAB\TRASTUZUMAB
     Indication: Product used for unknown indication
     Dosage: PHESGO 1200 MG/600 MG SOLUTION FOR INJECTION, 1 VIAL OF 15 ML
     Route: 065
     Dates: start: 20230810, end: 20230810

REACTIONS (1)
  - Apparent death [Not Recovered/Not Resolved]

NARRATIVE: CASE EVENT DATE: 20230810
